FAERS Safety Report 9956588 (Version 1)
Quarter: 2014Q1

REPORT INFORMATION
  Report Type: Report from Study
  Country: US (occurrence: US)
  Receive Date: 20140304
  Receipt Date: 20140304
  Transmission Date: 20141002
  Serious: No
  Sender: FDA-Public Use
  Company Number: US-ABBVIE-13P-163-1099025-00

PATIENT
  Age: 27 Year
  Sex: Male

DRUGS (7)
  1. HUMIRA [Suspect]
     Indication: CROHN^S DISEASE
     Dates: start: 20130507, end: 20130507
  2. HUMIRA [Suspect]
     Dates: start: 20130521, end: 20130521
  3. BUDESONIDE [Suspect]
     Indication: PRODUCT USED FOR UNKNOWN INDICATION
     Dosage: WEANED DOWN
  4. SERTRALINE [Concomitant]
     Indication: DEPRESSION
  5. LORAZEPAM [Concomitant]
     Indication: PANIC ATTACK
  6. TRAZODONE [Concomitant]
     Indication: INSOMNIA
  7. ASACOL [Concomitant]
     Indication: CROHN^S DISEASE

REACTIONS (4)
  - Laziness [Not Recovered/Not Resolved]
  - Fatigue [Not Recovered/Not Resolved]
  - Joint stiffness [Recovered/Resolved]
  - Joint crepitation [Recovered/Resolved]
